FAERS Safety Report 4870495-8 (Version None)
Quarter: 2005Q4

REPORT INFORMATION
  Report Type: 
  Country: None (occurrence: None)
  Receive Date: 20051228
  Receipt Date: 20051219
  Transmission Date: 20060501
  Serious: Yes (Other)
  Sender: FDA-Public Use
  Company Number: 1919

PATIENT
  Age: 29 Year
  Sex: Female

DRUGS (1)
  1. AMNESTEEM [Suspect]
     Dates: start: 20050322, end: 20050723

REACTIONS (2)
  - DRUG EXPOSURE BEFORE PREGNANCY [None]
  - PREGNANCY [None]
